FAERS Safety Report 4335081-7 (Version None)
Quarter: 2004Q2

REPORT INFORMATION
  Report Type: 
  Country: None (occurrence: None)
  Receive Date: 20040405
  Receipt Date: 20040322
  Transmission Date: 20050107
  Serious: Yes (Other)
  Sender: FDA-Public Use
  Company Number: STA-AE-04-MTX-111

PATIENT
  Age: 71 Year
  Sex: Female

DRUGS (2)
  1. METHOTREXATE [Suspect]
     Indication: RHEUMATOID ARTHRITIS
     Dosage: 2 WEEKLY, ORAL
     Route: 048
     Dates: start: 20020725
  2. IBUPROFEN [Concomitant]

REACTIONS (1)
  - SECONDARY HYPERTENSION [None]
